FAERS Safety Report 13298305 (Version 1)
Quarter: 2017Q1

REPORT INFORMATION
  Report Type: Spontaneous
  Country: US (occurrence: US)
  Receive Date: 20170306
  Receipt Date: 20170306
  Transmission Date: 20170428
  Serious: No
  Sender: FDA-Public Use
  Company Number: US-ASTRAZENECA-2017SE20920

PATIENT
  Sex: Male

DRUGS (2)
  1. BRILINTA [Suspect]
     Active Substance: TICAGRELOR
     Indication: MYOCARDIAL INFARCTION
     Route: 048
     Dates: start: 20150326
  2. BRILINTA [Suspect]
     Active Substance: TICAGRELOR
     Indication: CARDIAC PACEMAKER REPLACEMENT
     Route: 048
     Dates: start: 20150326

REACTIONS (4)
  - Vascular stenosis [Unknown]
  - Skin sensitisation [Unknown]
  - Contusion [Unknown]
  - Pain in extremity [Unknown]
